FAERS Safety Report 11309294 (Version 2)
Quarter: 2015Q3

REPORT INFORMATION
  Report Type: Spontaneous
  Country: US (occurrence: US)
  Receive Date: 20150724
  Receipt Date: 20150724
  Transmission Date: 20151125
  Serious: No
  Sender: FDA-Public Use
  Company Number: US-TOLMAR INC.-1040686

PATIENT
  Age: 46 Year
  Sex: Male
  Weight: 181.82 kg

DRUGS (1)
  1. CALCIPOTRIENE CREAM, 0.005% [Suspect]
     Active Substance: CALCIPOTRIENE
     Indication: PSORIASIS
     Route: 061
     Dates: start: 20141105, end: 20141105

REACTIONS (5)
  - Swelling [Recovered/Resolved]
  - Skin exfoliation [Recovered/Resolved]
  - Burning sensation [Recovered/Resolved]
  - Erythema [Recovered/Resolved]
  - Pruritus [Recovered/Resolved]

NARRATIVE: CASE EVENT DATE: 20141105
